FAERS Safety Report 16730861 (Version 2)
Quarter: 2020Q1

REPORT INFORMATION
  Report Type: Spontaneous
  Country: BE (occurrence: BE)
  Receive Date: 20190822
  Receipt Date: 20200205
  Transmission Date: 20200409
  Serious: Yes (Other)
  Sender: FDA-Public Use
  Company Number: PHHY2019BE191829

PATIENT
  Age: 38 Year
  Sex: Female

DRUGS (2)
  1. LEVETIRACETAM. [Suspect]
     Active Substance: LEVETIRACETAM
     Indication: EPILEPSY
     Dosage: UNK
     Route: 065
     Dates: start: 201907
  2. KEPPRA [Suspect]
     Active Substance: LEVETIRACETAM
     Indication: EPILEPSY
     Dosage: UNK
     Route: 065
     Dates: start: 201810, end: 2019

REACTIONS (6)
  - Parosmia [Recovered/Resolved]
  - Pharyngeal swelling [Recovered/Resolved]
  - Dyspnoea [Recovered/Resolved]
  - Gastric disorder [Recovered/Resolved]
  - Product blister packaging issue [Unknown]
  - Feeling abnormal [Unknown]

NARRATIVE: CASE EVENT DATE: 201907
